FAERS Safety Report 25519375 (Version 1)
Quarter: 2025Q3

REPORT INFORMATION
  Report Type: Spontaneous
  Country: CA (occurrence: CA)
  Receive Date: 20250704
  Receipt Date: 20250704
  Transmission Date: 20251020
  Serious: Yes (Other)
  Sender: TEVA
  Company Number: CA-TEVA-VS-3346826

PATIENT
  Age: 72 Year
  Sex: Male

DRUGS (8)
  1. DOXYCYCLINE [Suspect]
     Active Substance: DOXYCYCLINE
     Indication: Erosive pustular dermatosis
     Route: 065
  2. ISOTRETINOIN [Suspect]
     Active Substance: ISOTRETINOIN
     Indication: Erosive pustular dermatosis
     Route: 048
  3. PREDNISONE [Suspect]
     Active Substance: PREDNISONE
     Indication: Erosive pustular dermatosis
     Route: 065
  4. MOMETASONE FUROATE [Suspect]
     Active Substance: MOMETASONE FUROATE
     Indication: Erosive pustular dermatosis
     Route: 061
  5. COLCHICINE [Suspect]
     Active Substance: COLCHICINE
     Indication: Erosive pustular dermatosis
     Route: 065
  6. DAPSONE [Suspect]
     Active Substance: DAPSONE
     Indication: Erosive pustular dermatosis
     Route: 065
  7. DOVONEX [Suspect]
     Active Substance: CALCIPOTRIENE
     Indication: Product used for unknown indication
     Route: 065
  8. PROTOPIC [Suspect]
     Active Substance: TACROLIMUS
     Indication: Erosive pustular dermatosis
     Route: 065

REACTIONS (1)
  - Basal cell carcinoma [Unknown]
